FAERS Safety Report 23112252 (Version 2)
Quarter: 2023Q4

REPORT INFORMATION
  Report Type: Spontaneous
  Country: US (occurrence: US)
  Receive Date: 20231026
  Receipt Date: 20231027
  Transmission Date: 20240110
  Serious: Yes (Life-Threatening, Hospitalization, Other)
  Sender: FDA-Public Use
  Company Number: US-drreddys-LIT/USA/23/0180548

PATIENT
  Age: 65 Year
  Sex: Male

DRUGS (5)
  1. AMIODARONE [Suspect]
     Active Substance: AMIODARONE
     Indication: Ventricular tachycardia
     Dosage: TILL 4 MONTHS PRIOR TO THE CURRENT PRESENTATION
  2. AMIODARONE [Suspect]
     Active Substance: AMIODARONE
  3. AMIODARONE [Suspect]
     Active Substance: AMIODARONE
     Dosage: INFUSION RATE WAS INCREASED
  4. LIDOCAINE [Suspect]
     Active Substance: LIDOCAINE
     Indication: Ventricular tachycardia
  5. LIDOCAINE [Suspect]
     Active Substance: LIDOCAINE
     Dosage: INFUSION RATE WAS INCREASED

REACTIONS (6)
  - Ventricular tachycardia [Recovering/Resolving]
  - Paralysis [Recovering/Resolving]
  - Thyrotoxic crisis [Recovering/Resolving]
  - Cardiogenic shock [Recovering/Resolving]
  - Respiratory failure [Recovering/Resolving]
  - Drug ineffective [Unknown]
